FAERS Safety Report 7339405-8 (Version None)
Quarter: 2011Q1

REPORT INFORMATION
  Report Type: 
  Country: None (occurrence: None)
  Receive Date: 20110308
  Receipt Date: 20101213
  Transmission Date: 20110831
  Serious: No
  Sender: FDA-Public Use
  Company Number: US-AMGEN-USASP2010009170

PATIENT
  Age: 61 Year
  Sex: Female

DRUGS (6)
  1. PROLIA [Suspect]
     Indication: OSTEOPOROSIS POSTMENOPAUSAL
     Dosage: 60 MG, Q6MO
     Dates: start: 20101209
  2. THYROID TAB [Concomitant]
     Dosage: UNK UNK, QD
  3. FORTICAL [Suspect]
  4. LISINOPRIL [Concomitant]
     Dosage: UNK, QD
  5. OS-CAL + D [Concomitant]
     Dosage: UNK UNK, QOD
  6. VITAMIN D [Concomitant]

REACTIONS (3)
  - ERYTHEMA [None]
  - ERUCTATION [None]
  - FEELING HOT [None]
